FAERS Safety Report 13177517 (Version 1)
Quarter: 2017Q1

REPORT INFORMATION
  Report Type: Report from Study
  Country: US (occurrence: US)
  Receive Date: 20170201
  Receipt Date: 20170201
  Transmission Date: 20170428
  Serious: Yes (Other)
  Sender: FDA-Public Use
  Company Number: US-IPSEN-CABO-16006391

PATIENT
  Age: 68 Year
  Sex: Male

DRUGS (9)
  1. COMETRIQ [Suspect]
     Active Substance: CABOZANTINIB S-MALATE
     Dosage: 40 MG, QD
     Route: 048
     Dates: start: 2016, end: 2016
  2. COMETRIQ [Suspect]
     Active Substance: CABOZANTINIB S-MALATE
     Dosage: 40 MG, QD
     Route: 048
  3. COMETRIQ [Suspect]
     Active Substance: CABOZANTINIB S-MALATE
     Dosage: 40 MG, TAKE FOR 3 WEEKS AND THEN OFF A FEW DAYS
     Route: 048
  4. LISINOPRIL. [Concomitant]
     Active Substance: LISINOPRIL
  5. NOVOLOG [Concomitant]
     Active Substance: INSULIN ASPART
  6. COMETRIQ [Suspect]
     Active Substance: CABOZANTINIB S-MALATE
     Indication: THYROID CANCER
     Dosage: 140 MG, QD
     Route: 048
     Dates: start: 20160506, end: 201606
  7. SYNTHROID [Concomitant]
     Active Substance: LEVOTHYROXINE SODIUM
  8. LANTUS [Concomitant]
     Active Substance: INSULIN GLARGINE
  9. COMETRIQ [Suspect]
     Active Substance: CABOZANTINIB S-MALATE
     Dosage: 60 MG, QD
     Route: 048
     Dates: start: 201606, end: 201608

REACTIONS (33)
  - Tooth fracture [Unknown]
  - Chest pain [Recovering/Resolving]
  - Liver disorder [Unknown]
  - Malaise [Unknown]
  - Fatigue [Not Recovered/Not Resolved]
  - Oesophageal perforation [Unknown]
  - Hypoaesthesia [Unknown]
  - Heart rate increased [Unknown]
  - Fall [Unknown]
  - Decreased appetite [Unknown]
  - Venous haemorrhage [Unknown]
  - Nephrolithiasis [Unknown]
  - Oropharyngeal pain [Not Recovered/Not Resolved]
  - Toothache [Recovered/Resolved]
  - Arthralgia [Not Recovered/Not Resolved]
  - Stomatitis [Unknown]
  - Dehydration [Unknown]
  - Nausea [Unknown]
  - Metastases to bone [Unknown]
  - Skin papilloma [Unknown]
  - Affect lability [Unknown]
  - Diarrhoea [Recovered/Resolved]
  - Blood pressure increased [Unknown]
  - Dysphonia [Unknown]
  - Influenza [Unknown]
  - Pharyngeal ulceration [Recovered/Resolved]
  - Blood glucose fluctuation [Unknown]
  - Feeling abnormal [Not Recovered/Not Resolved]
  - Injury [Unknown]
  - Dizziness [Not Recovered/Not Resolved]
  - Muscle spasms [Not Recovered/Not Resolved]
  - Pain in jaw [Recovered/Resolved]
  - Weight decreased [Unknown]

NARRATIVE: CASE EVENT DATE: 20160508
